FAERS Safety Report 4775516-9 (Version None)
Quarter: 2005Q3

REPORT INFORMATION
  Report Type: 
  Country: None (occurrence: None)
  Receive Date: 20050922
  Receipt Date: 20050912
  Transmission Date: 20060218
  Serious: Yes (Death)
  Sender: FDA-Public Use
  Company Number: US-JNJFOC-20040303163

PATIENT
  Sex: Female

DRUGS (10)
  1. INFLIXIMAB [Suspect]
     Indication: RHEUMATOID ARTHRITIS
     Route: 042
  2. METHOTREXATE [Concomitant]
     Route: 065
  3. CELEBREX [Concomitant]
  4. PREDNISONE [Concomitant]
  5. ULTRAM [Concomitant]
  6. ULTRAM [Concomitant]
  7. ULTRAM [Concomitant]
  8. ULTRAM [Concomitant]
  9. ULTRAM [Concomitant]
  10. ULTRAM [Concomitant]

REACTIONS (1)
  - CARDIAC FAILURE CONGESTIVE [None]
